FAERS Safety Report 9912830 (Version 2)
Quarter: 2014Q1

REPORT INFORMATION
  Report Type: Spontaneous
  Country: US (occurrence: US)
  Receive Date: 20140220
  Receipt Date: 20140220
  Transmission Date: 20141002
  Serious: Yes (Other)
  Sender: FDA-Public Use
  Company Number: US-GE HEALTHCARE MEDICAL DIAGNOSTICS-OSCN-PR-0804S-0199

PATIENT
  Age: 64 Year
  Sex: Female

DRUGS (2)
  1. OMNISCAN [Suspect]
     Indication: CEREBROVASCULAR ACCIDENT
     Route: 042
     Dates: start: 20040929, end: 20040929
  2. OMNISCAN [Suspect]
     Indication: VERTIGO
     Route: 042
     Dates: start: 20060606, end: 20060606

REACTIONS (1)
  - Nephrogenic systemic fibrosis [Not Recovered/Not Resolved]
